FAERS Safety Report 19857066 (Version 1)
Quarter: 2021Q3

REPORT INFORMATION
  Report Type: Report from Study
  Country: None (occurrence: SK)
  Receive Date: 20210920
  Receipt Date: 20210920
  Transmission Date: 20211014
  Serious: Yes (Death, Life-Threatening, Hospitalization)
  Sender: FDA-Public Use
  Company Number: SK-ABBVIE-15P-260-3039799-00

PATIENT
  Age: 67 Year
  Sex: Male
  Weight: 93 kg

DRUGS (3)
  1. RITUXIMAB. [Concomitant]
     Active Substance: RITUXIMAB
     Indication: MANTLE CELL LYMPHOMA
     Route: 042
     Dates: start: 20131218, end: 20150428
  2. IBRUTINIB [Suspect]
     Active Substance: IBRUTINIB
     Indication: MANTLE CELL LYMPHOMA
     Route: 048
     Dates: start: 20131218, end: 20150613
  3. BENDAMUSTINE HYDROCHLORIDE. [Concomitant]
     Active Substance: BENDAMUSTINE HYDROCHLORIDE
     Indication: MANTLE CELL LYMPHOMA
     Dosage: ENDEDNOW,DAY 1 AND 2
     Route: 042
     Dates: start: 20131218, end: 20140522

REACTIONS (1)
  - Pneumonia fungal [Fatal]

NARRATIVE: CASE EVENT DATE: 20150609
